FAERS Safety Report 8417591-6 (Version None)
Quarter: 2012Q2

REPORT INFORMATION
  Report Type: 
  Country: None (occurrence: None)
  Receive Date: 20120606
  Receipt Date: 20120530
  Transmission Date: 20120825
  Serious: Yes (Disabling, Other)
  Sender: FDA-Public Use
  Company Number: CHPA2011US02588

PATIENT
  Sex: Female
  Weight: 79.819 kg

DRUGS (5)
  1. EXTRA STRENGTH TYLENOL [Concomitant]
     Dosage: 2 CAPLETS, BID
     Route: 048
  2. ASPIRIN [Concomitant]
     Dosage: 81 MG, QD
     Route: 048
  3. THERAPEUTIC MINERAL ICE [Suspect]
     Dosage: UNK, TWICE
     Route: 061
     Dates: start: 20110101
  4. THERAPEUTIC MINERAL ICE [Suspect]
     Indication: PAIN IN EXTREMITY
     Dosage: UNK, UNK
     Route: 061
     Dates: start: 19910101
  5. MULTI-VITAMINS [Concomitant]
     Dosage: UNK, QD
     Route: 048

REACTIONS (8)
  - CARDIAC MURMUR [None]
  - HYPERTENSION [None]
  - DRUG INEFFECTIVE [None]
  - BLOOD CHOLESTEROL INCREASED [None]
  - HYPERTONIC BLADDER [None]
  - MITRAL VALVE PROLAPSE [None]
  - GASTROOESOPHAGEAL REFLUX DISEASE [None]
  - INTRACRANIAL ANEURYSM [None]
